FAERS Safety Report 16429204 (Version 2)
Quarter: 2020Q2

REPORT INFORMATION
  Report Type: Spontaneous
  Country: US (occurrence: US)
  Receive Date: 20190614
  Receipt Date: 20200616
  Transmission Date: 20200713
  Serious: No
  Sender: FDA-Public Use
  Company Number: US-LUPIN PHARMACEUTICALS INC.-2019-03181

PATIENT
  Age: 74 Year
  Sex: Female

DRUGS (1)
  1. TEMAZEPAM CAPSULES, USP, 30 MG [Suspect]
     Active Substance: TEMAZEPAM
     Indication: INSOMNIA
     Dosage: 30 DOSAGE FORM, QD
     Route: 048
     Dates: start: 20190509, end: 20190509

REACTIONS (4)
  - Insomnia [Recovered/Resolved]
  - Muscle spasms [Recovered/Resolved]
  - Paradoxical drug reaction [Unknown]
  - Drug ineffective [Unknown]

NARRATIVE: CASE EVENT DATE: 20190509
